FAERS Safety Report 4961947-0 (Version None)
Quarter: 2006Q2

REPORT INFORMATION
  Report Type: 
  Country: None (occurrence: None)
  Receive Date: 20060404
  Receipt Date: 20060324
  Transmission Date: 20061013
  Serious: Yes (Disabling, Other)
  Sender: FDA-Public Use
  Company Number: PH-MERCK-0603PHL00007

PATIENT
  Age: 57 Year
  Sex: Male

DRUGS (6)
  1. ZOCOR [Suspect]
     Indication: HYPERCHOLESTEROLAEMIA
     Route: 048
     Dates: start: 20060120, end: 20060310
  2. CYCLOSPORINE [Concomitant]
     Indication: RENAL TRANSPLANT
     Route: 065
  3. PREDNISONE [Concomitant]
     Route: 065
  4. ISOSORBIDE MONONITRATE [Concomitant]
     Route: 065
  5. INSULIN HUMAN [Concomitant]
     Indication: DIABETES MELLITUS
     Route: 065
  6. ROSIGLITAZONE MALEATE [Concomitant]
     Indication: DIABETES MELLITUS
     Route: 065

REACTIONS (4)
  - ASTHENIA [None]
  - BLOOD CREATINE PHOSPHOKINASE INCREASED [None]
  - BLOOD CREATINE PHOSPHOKINASE MM INCREASED [None]
  - DYSSTASIA [None]
